FAERS Safety Report 8155494-5 (Version None)
Quarter: 2012Q1

REPORT INFORMATION
  Report Type: 
  Country: None (occurrence: None)
  Receive Date: 20120222
  Receipt Date: 20120213
  Transmission Date: 20120608
  Serious: Yes (Hospitalization)
  Sender: FDA-Public Use
  Company Number: DE-ELI_LILLY_AND_COMPANY-DE201202003404

PATIENT
  Age: 74 Year
  Sex: Female

DRUGS (3)
  1. ANALGESICS [Concomitant]
  2. CALCIUM [Concomitant]
  3. FORTEO [Suspect]
     Indication: OSTEOPOROSIS
     Dosage: UNK, QD
     Route: 058
     Dates: start: 20101122

REACTIONS (6)
  - DECREASED APPETITE [None]
  - LUNG DISORDER [None]
  - COUGH [None]
  - HYPOTENSION [None]
  - HEART RATE INCREASED [None]
  - DIARRHOEA [None]
